FAERS Safety Report 9066289 (Version 1)
Quarter: 2013Q1

REPORT INFORMATION
  Report Type: Report from Study
  Country: US (occurrence: US)
  Receive Date: 20130131
  Receipt Date: 20130131
  Transmission Date: 20140127
  Serious: No
  Sender: FDA-Public Use
  Company Number: US-ABBOTT-12P-163-1016519-00

PATIENT
  Age: 42 Year
  Sex: Female

DRUGS (1)
  1. HUMIRA [Suspect]
     Indication: CROHN^S DISEASE
     Dosage: LOADING DOSE
     Route: 058
     Dates: start: 20121108, end: 20121108

REACTIONS (6)
  - Malaise [Unknown]
  - Hypersensitivity [Recovered/Resolved]
  - Arthralgia [Not Recovered/Not Resolved]
  - Injection site rash [Recovered/Resolved]
  - Miliaria [Recovered/Resolved]
  - Pain [Unknown]
